FAERS Safety Report 15894351 (Version 3)
Quarter: 2019Q2

REPORT INFORMATION
  Report Type: Spontaneous
  Country: US (occurrence: US)
  Receive Date: 20190131
  Receipt Date: 20190404
  Transmission Date: 20190711
  Serious: No
  Sender: FDA-Public Use
  Company Number: US-TEVA-2019-US-1007163

PATIENT
  Age: 53 Year
  Sex: Female

DRUGS (1)
  1. AJOVY [Suspect]
     Active Substance: FREMANEZUMAB-VFRM
     Indication: MIGRAINE
     Dosage: DOSAGE: 1.5ML
     Dates: start: 201810

REACTIONS (3)
  - Drug ineffective [Unknown]
  - Constipation [Unknown]
  - Abdominal pain upper [Recovered/Resolved]
